FAERS Safety Report 10387613 (Version 1)
Quarter: 2014Q1

REPORT INFORMATION
  Report Type: Spontaneous
  Country: US (occurrence: None)
  Receive Date: 20140306
  Receipt Date: 20140306
  Transmission Date: 20141002
  Serious: Yes (Other)
  Sender: FDA-Public Use
  Company Number: 163-21880-13070962

PATIENT
  Age: 61 Year
  Sex: Male

DRUGS (20)
  1. REVLIMID (LENALIDOMIDE) (15 MILLIGRAM, CAPSULES) [Suspect]
     Indication: PLASMA CELL MYELOMA
     Dosage: 21 IN 28D
     Route: 048
     Dates: start: 20120626
  2. CHLORHEXIDINE (CHLORHEXIDINE) [Concomitant]
  3. AMITRIPTYLINE HCL (AMITRIPTYLINE HYDROCHLORIDE) [Concomitant]
  4. AMARYL (GLIMEPIRIDE) [Concomitant]
  5. FLUOXETINE (FLUOXETINE) [Concomitant]
  6. METFORMIN  HCL (METFORMIN HYDROCHLORIDE) [Concomitant]
  7. FOLIC ACID (FOLIC ACID) [Concomitant]
  8. ALLOPURINOL (ALLOPURINOL) [Concomitant]
  9. OMEPRAZOLE (OMEPRAZOLE) [Concomitant]
  10. BABY ASPIRIN (ACETYLSALICYLIC ACID) [Concomitant]
  11. PROAIR HFA (SALBUTAMOL SULFATE) [Concomitant]
  12. QVAR (BECLOMETASONE DIPROPIONATE) [Concomitant]
  13. IBUPROFEN (IBUPROFEN) [Concomitant]
  14. NEUPOGEN (FILGRASTIM) [Concomitant]
  15. VALACYCLOVIR (VALACICLOVIR HYDROCHLORIDE) [Concomitant]
  16. ZOMETA (ZOLEDRONIC ACID) [Concomitant]
  17. MVI (MVI) [Concomitant]
  18. LIPITOR (ATORVASTATIN) [Concomitant]
  19. GEMFIBROZIL (GEMFIBROZIL) [Concomitant]
  20. LORAZEPAM (LORAZEPAM) [Concomitant]

REACTIONS (3)
  - Haematemesis [None]
  - Platelet count decreased [None]
  - Epistaxis [None]
